FAERS Safety Report 23279202 (Version 2)
Quarter: 2024Q4

REPORT INFORMATION
  Report Type: Spontaneous
  Country: US (occurrence: US)
  Receive Date: 20231209
  Receipt Date: 20241016
  Transmission Date: 20250115
  Serious: No
  Sender: SANOFI AVENTIS
  Company Number: US-SA-SAC20231204000314

PATIENT
  Age: 90 Year
  Sex: Male
  Weight: 79.365 kg

DRUGS (1)
  1. DUPIXENT [Suspect]
     Active Substance: DUPILUMAB
     Indication: Dermatitis atopic
     Dosage: 300 MG, QOW
     Route: 058
     Dates: start: 20231108

REACTIONS (6)
  - Arthralgia [Unknown]
  - Dermatitis atopic [Unknown]
  - Skin laceration [Unknown]
  - Pain of skin [Unknown]
  - Rash macular [Unknown]
  - Drug ineffective [Unknown]

NARRATIVE: CASE EVENT DATE: 20230101
